FAERS Safety Report 9473408 (Version 2)
Quarter: 2013Q3

REPORT INFORMATION
  Report Type: Spontaneous
  Country: US (occurrence: US)
  Receive Date: 20130823
  Receipt Date: 20130823
  Transmission Date: 20140515
  Serious: Yes (Other)
  Sender: FDA-Public Use
  Company Number: US-BRISTOL-MYERS SQUIBB COMPANY-18951988

PATIENT
  Age: 63 Year
  Sex: Female

DRUGS (8)
  1. SPRYCEL [Suspect]
     Indication: CHRONIC MYELOID LEUKAEMIA
     Route: 048
     Dates: start: 201303, end: 20130424
  2. AMBIEN [Concomitant]
     Dosage: TABS
     Route: 048
  3. CARDIZEM CD [Concomitant]
     Route: 048
  4. LOSARTAN POTASSIUM [Concomitant]
     Dosage: 1DF:100-12.5MG?TABS
     Route: 048
  5. PREMARIN [Concomitant]
     Dosage: TABS
     Route: 048
  6. TRAMADOL HCL [Concomitant]
     Dosage: TABS
     Route: 048
  7. ZEBETA [Concomitant]
     Dosage: TABS
     Route: 048
  8. XANAX [Concomitant]
     Route: 048
     Dates: end: 20130417

REACTIONS (9)
  - Pulmonary oedema [Recovering/Resolving]
  - Dizziness [Recovering/Resolving]
  - Nausea [Recovering/Resolving]
  - Periorbital oedema [Recovering/Resolving]
  - Fatigue [Recovering/Resolving]
  - Asthenia [Recovering/Resolving]
  - Decreased appetite [Recovering/Resolving]
  - Pleural effusion [Unknown]
  - Pericardial effusion [Unknown]
